FAERS Safety Report 11046430 (Version 1)
Quarter: 2015Q2

REPORT INFORMATION
  Report Type: Spontaneous
  Country: FR (occurrence: FR)
  Receive Date: 20150420
  Receipt Date: 20150420
  Transmission Date: 20150821
  Serious: Yes (Hospitalization)
  Sender: FDA-Public Use
  Company Number: FR-ROCHE-1564471

PATIENT
  Age: 60 Year
  Sex: Male

DRUGS (4)
  1. KARDEGIC [Concomitant]
     Active Substance: ASPIRIN LYSINE
     Route: 065
  2. CRESTOR [Concomitant]
     Active Substance: ROSUVASTATIN CALCIUM
     Route: 065
  3. RULID [Suspect]
     Active Substance: ROXITHROMYCIN
     Indication: LUNG DISORDER
     Dosage: FOR TEN DAYS, IN THE MORNING AND EVENING
     Route: 048
  4. ROCEPHINE [Suspect]
     Active Substance: CEFTRIAXONE SODIUM
     Indication: LUNG DISORDER
     Dosage: FOR 5 DAYS
     Route: 030

REACTIONS (5)
  - Diarrhoea [Not Recovered/Not Resolved]
  - Clostridium difficile colitis [Recovered/Resolved]
  - Decreased appetite [Recovered/Resolved]
  - Abdominal pain upper [Recovered/Resolved]
  - Nausea [Recovered/Resolved]

NARRATIVE: CASE EVENT DATE: 201412
